FAERS Safety Report 6544276-3 (Version None)
Quarter: 2010Q1

REPORT INFORMATION
  Report Type: 
  Country: None (occurrence: None)
  Receive Date: 20100115
  Receipt Date: 20100105
  Transmission Date: 20100710
  Serious: Yes (Death)
  Sender: FDA-Public Use
  Company Number: 008182

PATIENT
  Age: 8 Month

DRUGS (4)
  1. BUSULFEX [Suspect]
     Indication: STEM CELL TRANSPLANT
     Dates: start: 19910101
  2. CYTOXAN [Concomitant]
  3. ANTI-THYMOCYTE GLOBULIN NOS [Concomitant]
  4. THIOTEPA [Concomitant]

REACTIONS (3)
  - GRAFT VERSUS HOST DISEASE [None]
  - LYMPHOPROLIFERATIVE DISORDER [None]
  - TRANSPLANT FAILURE [None]
